FAERS Safety Report 26119318 (Version 3)
Quarter: 2025Q4

REPORT INFORMATION
  Report Type: Spontaneous
  Country: JP (occurrence: JP)
  Receive Date: 20251204
  Receipt Date: 20251225
  Transmission Date: 20260118
  Serious: Yes (Other)
  Sender: BEIGENE
  Company Number: JP-BEONEMEDICINES-BGN-2025-021384

PATIENT
  Age: 8 Decade
  Sex: Male

DRUGS (3)
  1. TEVIMBRA [Suspect]
     Active Substance: TISLELIZUMAB-JSGR
     Indication: Oesophageal cancer metastatic
     Dosage: 200 MILLIGRAM/BODY
     Dates: start: 20250912, end: 20251121
  2. CISPLATIN [Suspect]
     Active Substance: CISPLATIN
     Indication: Oesophageal cancer metastatic
  3. FLUOROURACIL [Suspect]
     Active Substance: FLUOROURACIL
     Indication: Oesophageal cancer metastatic

REACTIONS (2)
  - Disease progression [Unknown]
  - Therapeutic response decreased [Unknown]
